FAERS Safety Report 23426708 (Version 1)
Quarter: 2024Q1

REPORT INFORMATION
  Report Type: Spontaneous
  Country: US (occurrence: US)
  Receive Date: 20240122
  Receipt Date: 20240122
  Transmission Date: 20240410
  Serious: Yes (Death, Life-Threatening, Hospitalization, Other)
  Sender: FDA-Public Use
  Company Number: None

PATIENT
  Age: 82 Year
  Sex: Female

DRUGS (4)
  1. PREDNISONE [Suspect]
     Active Substance: PREDNISONE
     Indication: Anti-glomerular basement membrane disease
     Dosage: 75 MILLIGRAM
     Route: 065
  2. METHYLPREDNISOLONE [Suspect]
     Active Substance: METHYLPREDNISOLONE
     Indication: Anti-glomerular basement membrane disease
     Dosage: 1000 MILLIGRAM
     Route: 065
  3. CYCLOPHOSPHAMIDE [Suspect]
     Active Substance: CYCLOPHOSPHAMIDE
     Indication: Anti-glomerular basement membrane disease
     Dosage: 1 MILLIGRAM/KILOGRAM, QD
     Route: 065
  4. RITUXIMAB [Suspect]
     Active Substance: RITUXIMAB
     Indication: Anti-glomerular basement membrane disease
     Dosage: 375 MILLIGRAM/SQ. METER, HOSPITAL DAY 15
     Route: 065

REACTIONS (9)
  - Adenovirus infection [Fatal]
  - Erythema [Fatal]
  - Multiple organ dysfunction syndrome [Fatal]
  - Condition aggravated [Fatal]
  - Hepatitis [Fatal]
  - Haemodynamic instability [Fatal]
  - Pneumonia aspiration [Fatal]
  - Pleural effusion [Fatal]
  - Off label use [Unknown]
